FAERS Safety Report 17271873 (Version 2)
Quarter: 2020Q1

REPORT INFORMATION
  Report Type: Spontaneous
  Country: JP (occurrence: JP)
  Receive Date: 20200115
  Receipt Date: 20200309
  Transmission Date: 20200409
  Serious: Yes (Hospitalization, Other)
  Sender: FDA-Public Use
  Company Number: JP-CHEPLA-491704

PATIENT
  Age: 64 Year
  Sex: Male

DRUGS (24)
  1. VALIXA [Suspect]
     Active Substance: VALGANCICLOVIR
     Route: 048
     Dates: start: 20050623, end: 20050707
  2. BACTRIM [Suspect]
     Active Substance: SULFAMETHOXAZOLE\TRIMETHOPRIM
     Route: 048
     Dates: start: 20050325, end: 20060523
  3. ZITHROMAX [Suspect]
     Active Substance: AZITHROMYCIN DIHYDRATE
     Indication: KAPOSI^S SARCOMA
     Route: 048
     Dates: start: 20050418, end: 20060123
  4. ALUDROX [Concomitant]
  5. MAGNESIUM OXIDE. [Concomitant]
     Active Substance: MAGNESIUM OXIDE
     Dates: start: 20070423, end: 20070617
  6. BAYASPIRIN [Concomitant]
     Active Substance: ASPIRIN
     Route: 048
  7. ONDANSETRON HYDROCHLORIDE. [Concomitant]
     Active Substance: ONDANSETRON HYDROCHLORIDE
     Route: 065
     Dates: start: 20050723, end: 20050901
  8. ZERIT [Suspect]
     Active Substance: STAVUDINE
     Indication: HIV INFECTION
     Route: 048
     Dates: start: 20050613, end: 20060518
  9. GANCICLOVIR. [Suspect]
     Active Substance: GANCICLOVIR
     Indication: CYTOMEGALOVIRUS OESOPHAGITIS
     Dosage: FORM REPORTED AS INFUSION.
     Route: 041
     Dates: start: 20050601, end: 20050622
  10. DEPAS [Concomitant]
     Route: 048
     Dates: end: 20050721
  11. EMTRICITABINE, TENOFOVIR DISOPROXIL [Concomitant]
     Dates: start: 20061107
  12. RABEPRAZOLE SODIUM. [Suspect]
     Active Substance: RABEPRAZOLE SODIUM
     Route: 048
     Dates: end: 20060507
  13. EPIVIR [Concomitant]
     Active Substance: LAMIVUDINE
     Indication: HIV INFECTION
     Route: 048
     Dates: start: 20050613, end: 20051126
  14. FILGRASTIM [Concomitant]
     Active Substance: FILGRASTIM
     Dosage: FILGRASTIM WAS ADMINISTRERED ON 04 JULY 2005 AND ON 07 JULY 2005.
     Route: 058
     Dates: start: 20050704, end: 20050707
  15. MAALOX PRODUCT NOS [Concomitant]
     Dosage: FIRST THERAPY: FROM UNKNOWN TO 21 JULY 2005. SECOND THERAPY: FROM 22 JULY 2005 TO 31 MARCH 2006. BO+
     Route: 048
  16. SUCRALFATE. [Concomitant]
     Active Substance: SUCRALFATE
     Dates: end: 20060507
  17. TENOFOVIR [Concomitant]
     Active Substance: TENOFOVIR
     Dates: start: 20060519, end: 20061126
  18. KALETRA [Suspect]
     Active Substance: LOPINAVIR\RITONAVIR
     Indication: HIV INFECTION
     Route: 048
     Dates: start: 20061127
  19. KALETRA [Suspect]
     Active Substance: LOPINAVIR\RITONAVIR
     Indication: HIV INFECTION
     Route: 048
  20. DOXORUBICIN HYDROCHLORIDE. [Suspect]
     Active Substance: DOXORUBICIN HYDROCHLORIDE
     Indication: PROPHYLAXIS OF NAUSEA AND VOMITING
     Route: 065
     Dates: start: 20050323
  21. PARIET [Suspect]
     Active Substance: RABEPRAZOLE SODIUM
     Dosage: FIRST THERAPY: FROM UNKNOWN TO 21 JULY 2005. SECOND THERAPY: FROM 22 JULY 2005 TO 31 MARCH 2006. BO+
     Route: 048
     Dates: end: 20060331
  22. ACECOL [Concomitant]
     Active Substance: TEMOCAPRIL HYDROCHLORIDE
     Route: 048
  23. ULCERLMIN [Concomitant]
     Active Substance: SUCRALFATE
     Dosage: FIRST THERAPY: FROM UNKNOWN TO 21 JULY 2005. SECOND THERAPY: FROM 22 JULY 2005 TO 31 MARCH 2006. BO+
     Route: 048
     Dates: start: 20060331
  24. VALIXA [Suspect]
     Active Substance: VALGANCICLOVIR
     Indication: CYTOMEGALOVIRUS OESOPHAGITIS
     Route: 048
     Dates: start: 20050530, end: 20050531

REACTIONS (4)
  - Hypertriglyceridaemia [Not Recovered/Not Resolved]
  - White blood cell count decreased [Recovered/Resolved]
  - Immune reconstitution inflammatory syndrome [Unknown]
  - Kaposi^s sarcoma [Recovered/Resolved]

NARRATIVE: CASE EVENT DATE: 20050704
